FAERS Safety Report 5870154-9 (Version None)
Quarter: 2008Q3

REPORT INFORMATION
  Report Type: 
  Country: None (occurrence: None)
  Receive Date: 20080904
  Receipt Date: 20080822
  Transmission Date: 20090109
  Serious: Yes (Other)
  Sender: FDA-Public Use
  Company Number: US-PFIZER INC-2008066484

PATIENT
  Sex: Female
  Weight: 57.2 kg

DRUGS (7)
  1. GEODON [Suspect]
     Indication: SCHIZOAFFECTIVE DISORDER
     Dosage: DAILY DOSE:120MG-TEXT:QD EVERY DAY TDD:120 MG
  2. GEODON [Suspect]
     Indication: BIPOLAR DISORDER
  3. VITAMIN D [Concomitant]
  4. LUVOX [Concomitant]
  5. PREMARIN [Concomitant]
  6. TRICOR [Concomitant]
  7. CLONIDINE [Concomitant]

REACTIONS (4)
  - HYPERPROLACTINAEMIA [None]
  - HYPOTHYROIDISM [None]
  - PITUITARY ENLARGEMENT [None]
  - VITAMIN D DECREASED [None]
